FAERS Safety Report 17564596 (Version 7)
Quarter: 2024Q2

REPORT INFORMATION
  Report Type: Other
  Country: DE (occurrence: None)
  Receive Date: 20200320
  Receipt Date: 20240517
  Transmission Date: 20240716
  Serious: Yes (Hospitalization, Other)
  Sender: FDA-Public Use
  Company Number: DE-ROCHE-2362638

PATIENT
  Age: 56 Year
  Sex: Female

DRUGS (8)
  1. OCREVUS [Suspect]
     Active Substance: OCRELIZUMAB
     Indication: Relapsing-remitting multiple sclerosis
     Route: 042
     Dates: start: 20181212
  2. OCREVUS [Suspect]
     Active Substance: OCRELIZUMAB
     Dosage: 6TH MAINTANANCE DOSE
     Route: 042
     Dates: start: 20220406, end: 20220406
  3. LYRICA [Concomitant]
     Active Substance: PREGABALIN
  4. TOLPERISONE [Concomitant]
     Active Substance: TOLPERISONE
  5. BACLOFEN [Concomitant]
     Active Substance: BACLOFEN
  6. SPASMEX (GERMANY) [Concomitant]
  7. POLYETHYLENE GLYCOLS [Concomitant]
     Active Substance: POLYETHYLENE GLYCOLS
  8. CINNARIZINE\DIMENHYDRINATE [Concomitant]
     Active Substance: CINNARIZINE\DIMENHYDRINATE

REACTIONS (7)
  - Haemorrhage [Recovered/Resolved]
  - Pneumonia [Recovered/Resolved]
  - C-reactive protein increased [Recovered/Resolved]
  - Urinary retention [Not Recovered/Not Resolved]
  - Vaccination site pain [Recovered/Resolved]
  - Cough [Recovered/Resolved]
  - Nasopharyngitis [Recovered/Resolved]

NARRATIVE: CASE EVENT DATE: 20190501
